FAERS Safety Report 24753612 (Version 1)
Quarter: 2024Q4

REPORT INFORMATION
  Report Type: Report from Study
  Country: US (occurrence: US)
  Receive Date: 20241219
  Receipt Date: 20241219
  Transmission Date: 20250114
  Serious: No
  Sender: UCB
  Company Number: US-UCBSA-2024065727

PATIENT
  Age: 21 Year
  Sex: Male
  Weight: 55.8 kg

DRUGS (1)
  1. FINTEPLA [Suspect]
     Active Substance: FENFLURAMINE
     Indication: Product used for unknown indication
     Dosage: 0.43MG/KG/DAY
     Dates: start: 20221009

REACTIONS (1)
  - Aortic valve thickening [Unknown]

NARRATIVE: CASE EVENT DATE: 20241209
